FAERS Safety Report 8960580 (Version 1)
Quarter: 2012Q4

REPORT INFORMATION
  Report Type: Spontaneous
  Country: HR (occurrence: None)
  Receive Date: 20121203
  Receipt Date: 20121203
  Transmission Date: 20130627
  Serious: Yes (Hospitalization, Other)
  Sender: FDA-Public Use
  Company Number: HR-INDICUS PHARMA-000042

PATIENT
  Age: 72 Year
  Sex: Female

DRUGS (1)
  1. METFORMIN HYDROCHLORIDE [Suspect]
     Indication: TYPE II DIABETES MELLITUS

REACTIONS (8)
  - Anaemia haemolytic autoimmune [None]
  - Diarrhoea [None]
  - Nausea [None]
  - Vomiting [None]
  - Incorrect dose administered [None]
  - Blood glucose increased [None]
  - Paradoxical drug reaction [None]
  - Hepatic steatosis [None]
